FAERS Safety Report 16985753 (Version 1)
Quarter: 2019Q4

REPORT INFORMATION
  Report Type: Spontaneous
  Country: US (occurrence: US)
  Receive Date: 20190917
  Receipt Date: 20190917
  Transmission Date: 20200122
  Serious: Yes (Death)
  Sender: FDA-Public Use
  Company Number: None

PATIENT
  Age: 3 Year
  Sex: Male

DRUGS (3)
  1. AMOXICILLIN SUS 400/5ML [Suspect]
     Active Substance: AMOXICILLIN
     Indication: INFECTION
     Dates: start: 20190410, end: 20190430
  2. LETAIRIS [Concomitant]
     Active Substance: AMBRISENTAN
  3. SILDENAFIL 10MG/ML (112ML) [Suspect]
     Active Substance: SILDENAFIL
     Indication: PULMONARY HYPERTENSION
     Route: 048
     Dates: start: 20170324, end: 20190913

REACTIONS (1)
  - Death [None]

NARRATIVE: CASE EVENT DATE: 20190916
